FAERS Safety Report 20835535 (Version 2)
Quarter: 2022Q2

REPORT INFORMATION
  Report Type: Spontaneous
  Country: US (occurrence: US)
  Receive Date: 20220516
  Receipt Date: 20220520
  Transmission Date: 20220721
  Serious: No
  Sender: FDA-Public Use
  Company Number: US-SANOFI-01096433

PATIENT
  Age: 82 Year
  Sex: Female

DRUGS (2)
  1. LANTUS SOLOSTAR [Suspect]
     Active Substance: INSULIN GLARGINE
     Indication: Type 2 diabetes mellitus
     Dosage: DOSE BEFORE BREAKFAST
  2. NOVOLOG [Concomitant]
     Active Substance: INSULIN ASPART
     Dosage: AT NIGHT

REACTIONS (2)
  - Visual impairment [Unknown]
  - Incorrect dose administered by device [Unknown]
